FAERS Safety Report 9738783 (Version 1)
Quarter: 2013Q4

REPORT INFORMATION
  Report Type: Spontaneous
  Country: US (occurrence: PR)
  Receive Date: 20131209
  Receipt Date: 20131209
  Transmission Date: 20140711
  Serious: No
  Sender: FDA-Public Use
  Company Number: US-BAYER-2013-149994

PATIENT
  Age: 69 Year
  Sex: Female

DRUGS (1)
  1. GADAVIST [Suspect]
     Dosage: 7 ML, ONCE
     Route: 042
     Dates: start: 20131119, end: 20131119

REACTIONS (3)
  - Cough [Recovered/Resolved]
  - Rhinorrhoea [Recovered/Resolved]
  - Dyspnoea [Recovered/Resolved]
